FAERS Safety Report 9233810 (Version 2)
Quarter: 2013Q2

REPORT INFORMATION
  Report Type: Spontaneous
  Country: AT (occurrence: AT)
  Receive Date: 20130416
  Receipt Date: 20130425
  Transmission Date: 20140414
  Serious: Yes (Other)
  Sender: FDA-Public Use
  Company Number: AT-PFIZER INC-2013112594

PATIENT
  Age: 68 Year
  Sex: Female

DRUGS (4)
  1. XALKORI [Suspect]
     Indication: ADENOCARCINOMA
     Dosage: 500 MG, 1X/DAY
     Dates: start: 20121214, end: 20130117
  2. XALKORI [Suspect]
     Dosage: 200 MG, 2X/DAY
     Dates: start: 201302
  3. PANTOLOC [Concomitant]
     Dosage: 40 MG, 1X/DAY
  4. INHIBACE [Concomitant]
     Dosage: 2.5 MG, 1X/DAY

REACTIONS (5)
  - Renal impairment [Recovering/Resolving]
  - Alanine aminotransferase increased [Recovered/Resolved]
  - Aspartate aminotransferase increased [Recovered/Resolved]
  - Musculoskeletal pain [Unknown]
  - Nausea [Unknown]
